FAERS Safety Report 6528800-2 (Version None)
Quarter: 2010Q1

REPORT INFORMATION
  Report Type: 
  Country: None (occurrence: None)
  Receive Date: 20100106
  Receipt Date: 20091231
  Transmission Date: 20100710
  Serious: Yes (Other)
  Sender: FDA-Public Use
  Company Number: US-AMGEN-KDL383414

PATIENT
  Age: 76 Year
  Sex: Female
  Weight: 59.9 kg

DRUGS (3)
  1. PROCRIT [Suspect]
     Indication: ANAEMIA OF MALIGNANT DISEASE
     Route: 065
     Dates: start: 20060101, end: 20060101
  2. EXFORGE [Concomitant]
  3. ZOCOR [Concomitant]

REACTIONS (1)
  - LUNG NEOPLASM MALIGNANT [None]
